FAERS Safety Report 9400026 (Version 2)
Quarter: 2013Q3

REPORT INFORMATION
  Report Type: Spontaneous
  Country: IT (occurrence: IT)
  Receive Date: 20130715
  Receipt Date: 20130725
  Transmission Date: 20140515
  Serious: Yes (Hospitalization)
  Sender: FDA-Public Use
  Company Number: IT-PFIZER INC-2013205204

PATIENT
  Age: 20 Year
  Sex: Female

DRUGS (5)
  1. PANTORC [Suspect]
     Dosage: 200 MG, DAILY
     Route: 042
     Dates: start: 20130506, end: 20130510
  2. PREDNISONE [Concomitant]
     Dosage: UNK
  3. PYRIDOSTIGMINE BROMIDE [Concomitant]
     Dosage: UNK
  4. BILASTINE [Concomitant]
     Dosage: UNK
  5. MAALOX [Concomitant]
     Dosage: UNK

REACTIONS (2)
  - Blood immunoglobulin E increased [Recovered/Resolved]
  - Rash generalised [Recovered/Resolved]
